FAERS Safety Report 6872814-X (Version None)
Quarter: 2010Q3

REPORT INFORMATION
  Report Type: 
  Country: None (occurrence: None)
  Receive Date: 20100723
  Receipt Date: 20081112
  Transmission Date: 20110219
  Serious: Yes (Other)
  Sender: FDA-Public Use
  Company Number: US-PFIZER INC-2008091082

PATIENT
  Age: 52 Year
  Sex: Female

DRUGS (1)
  1. CHANTIX [Suspect]
     Indication: SMOKING CESSATION THERAPY
     Dates: start: 20080916, end: 20081020

REACTIONS (8)
  - AGGRESSION [None]
  - DEPRESSION [None]
  - EMOTIONAL DISTRESS [None]
  - FORMICATION [None]
  - INSOMNIA [None]
  - IRRITABILITY [None]
  - SUICIDAL IDEATION [None]
  - THINKING ABNORMAL [None]
